FAERS Safety Report 13572140 (Version 2)
Quarter: 2017Q3

REPORT INFORMATION
  Report Type: Spontaneous
  Country: GB (occurrence: GB)
  Receive Date: 20170523
  Receipt Date: 20170710
  Transmission Date: 20171127
  Serious: Yes (Death, Hospitalization)
  Sender: FDA-Public Use
  Company Number: GB-TORRENT-00008812

PATIENT
  Sex: Female

DRUGS (1)
  1. OLANZAPINE. [Suspect]
     Active Substance: OLANZAPINE

REACTIONS (8)
  - Depression suicidal [Fatal]
  - General physical health deterioration [Fatal]
  - Trance [Fatal]
  - Hallucination, auditory [Fatal]
  - Bipolar I disorder [Fatal]
  - Completed suicide [Fatal]
  - Suicidal ideation [Fatal]
  - Altered state of consciousness [Fatal]
